FAERS Safety Report 4870316-3 (Version None)
Quarter: 2005Q4

REPORT INFORMATION
  Report Type: 
  Country: None (occurrence: None)
  Receive Date: 20051228
  Receipt Date: 20051213
  Transmission Date: 20060501
  Serious: Yes (Hospitalization, Disabling)
  Sender: FDA-Public Use
  Company Number: JP_050306088

PATIENT
  Age: 56 Year
  Sex: Female
  Weight: 54.8 kg

DRUGS (7)
  1. ZYPREXA [Suspect]
     Indication: SCHIZOPHRENIA
     Dosage: 15 MG, DAILY (1/D), ORAL
     Route: 048
     Dates: start: 20041102, end: 20050106
  2. ZOTEPINE (ZOTEPINE) [Concomitant]
  3. BIPERIDEN HYDROCHLORIDE TAB [Concomitant]
  4. FLULNITRAZEPAM (FLUNIRAZEPAM) [Concomitant]
  5. OM [Concomitant]
  6. ALOSENN /00476901/ [Concomitant]
  7. PANTOSIN (PANTETHINE) [Concomitant]

REACTIONS (16)
  - ALANINE AMINOTRANSFERASE INCREASED [None]
  - ANXIETY [None]
  - ASPARTATE AMINOTRANSFERASE INCREASED [None]
  - BLOOD ALKALINE PHOSPHATASE INCREASED [None]
  - BLOOD LACTATE DEHYDROGENASE INCREASED [None]
  - DYSURIA [None]
  - FALL [None]
  - GAMMA-GLUTAMYLTRANSFERASE INCREASED [None]
  - HEPATIC FUNCTION ABNORMAL [None]
  - HUMERUS FRACTURE [None]
  - INSOMNIA [None]
  - MYOGLOBINURIA [None]
  - NEUROLEPTIC MALIGNANT SYNDROME [None]
  - ORAL INTAKE REDUCED [None]
  - SEROTONIN SYNDROME [None]
  - URINARY INCONTINENCE [None]
